FAERS Safety Report 20106303 (Version 2)
Quarter: 2022Q1

REPORT INFORMATION
  Report Type: Report from Study
  Country: MX (occurrence: MX)
  Receive Date: 20211124
  Receipt Date: 20220104
  Transmission Date: 20220424
  Serious: Yes (Hospitalization, Other)
  Sender: FDA-Public Use
  Company Number: MX-NOVARTISPH-NVSC2021MX266712

PATIENT
  Age: 70 Year
  Sex: Male
  Weight: 70 kg

DRUGS (16)
  1. ENTRESTO [Suspect]
     Active Substance: SACUBITRIL\VALSARTAN
     Indication: Cardiac failure
     Dosage: 0.5 DOSAGE FORM, BID (0.5 IN MORNING, 0.5 AT NIGHT)
     Route: 048
  2. ENTRESTO [Suspect]
     Active Substance: SACUBITRIL\VALSARTAN
     Indication: Myocardial infarction
  3. LEVOSIMENDAN [Concomitant]
     Active Substance: LEVOSIMENDAN
     Indication: Cardiac failure
     Dosage: 1 DOSAGE FORM (STARTED 4 YEARS AGO, ANNUALLY)
     Route: 042
     Dates: end: 202111
  4. LEVOSIMENDAN [Concomitant]
     Active Substance: LEVOSIMENDAN
     Dosage: 2.5 MG (EVERY 6 MONTHS)
     Route: 042
     Dates: start: 20211111
  5. JANUMET [Concomitant]
     Active Substance: METFORMIN HYDROCHLORIDE\SITAGLIPTIN PHOSPHATE
     Indication: Diabetes mellitus
     Dosage: 1 DOSAGE FORM, QD (STARTED 8 YEARS AGO)
     Route: 048
  6. PANTOPRAZOLE SODIUM [Concomitant]
     Active Substance: PANTOPRAZOLE SODIUM
     Indication: Cardiac dysfunction
     Dosage: 1 DOSAGE FORM, QD (STARTED 4 YEARS AGO)
     Route: 048
  7. METOPROLOL [Concomitant]
     Active Substance: METOPROLOL
     Indication: Cardiac dysfunction
     Dosage: 1.5 DOSAGE FORM (1 IN THE MORNING AND 0.5 AT NIGHT, STARTED 4 YEARS AGO)
     Route: 048
  8. ASPIRIN [Concomitant]
     Active Substance: ASPIRIN
     Indication: Cardiac dysfunction
     Dosage: 1 DOSAGE FORM QD IN THE MORNING (STARTED 4 YEARS AGO)
     Route: 048
  9. FUROSEMIDE [Concomitant]
     Active Substance: FUROSEMIDE
     Indication: Cardiac dysfunction
     Dosage: 2.5 DOSAGE FORM (2 IN THE MORNING AND 0.5 AT NIGHT, STARTED 4 YEARS AGO)
     Route: 048
  10. ELIQUIS [Concomitant]
     Active Substance: APIXABAN
     Indication: Cardiac dysfunction
     Dosage: 0.5 DOSAGE FORM (0.5 IN MORNING AND 0.5 AT NIGHT, STARTED 4 YEARS AGO)
     Route: 048
  11. TRIMETAZIDINE DIHYDROCHLORIDE [Concomitant]
     Active Substance: TRIMETAZIDINE DIHYDROCHLORIDE
     Indication: Cardiac dysfunction
     Dosage: 2 DOSAGE FORM (1 IN THE MORNING AND 1 AT NIGHT, STARTED 4 YEARS AGO)
     Route: 048
  12. DAPAGLIFLOZIN [Concomitant]
     Active Substance: DAPAGLIFLOZIN
     Indication: Cardiac dysfunction
     Dosage: 0.5 MG, (IN THE AFTERNOON) STARTED 8 YEARS AGO
     Route: 065
  13. DIGOXIN [Concomitant]
     Active Substance: DIGOXIN
     Indication: Cardiac dysfunction
     Dosage: 1 DOSAGE FORM (IN THE MORNING) STARTED 8 YEARS AGO
     Route: 065
  14. SPIRONOLACTONE [Concomitant]
     Active Substance: SPIRONOLACTONE
     Indication: Cardiac dysfunction
     Dosage: 1 DOSAGE FORM, IN THE AFTERNOON (STARTED 8 YEARS AGO)
     Route: 065
  15. CLOPIDOGREL [Concomitant]
     Active Substance: CLOPIDOGREL BISULFATE
     Indication: Cardiac dysfunction
     Dosage: 1 DOSAGE FORM IN THE MORNING (4 YEARS AGO)
     Route: 048
  16. ATORVASTATIN [Concomitant]
     Active Substance: ATORVASTATIN
     Indication: Cardiac dysfunction
     Dosage: 1 DOSAGE FORM, AT NIGHT (STARTED 8 YEARS AGO)
     Route: 048

REACTIONS (10)
  - Urinary tract infection [Recovered/Resolved]
  - Sepsis [Recovered/Resolved]
  - Hypothermia [Recovered/Resolved]
  - Chills [Recovered/Resolved]
  - Hypotension [Recovered/Resolved]
  - Hypothermia [Recovered/Resolved]
  - Kidney infection [Recovered/Resolved]
  - Chills [Recovered/Resolved]
  - Hypotension [Recovered/Resolved]
  - Wrong technique in product usage process [Unknown]

NARRATIVE: CASE EVENT DATE: 20211001
